FAERS Safety Report 13065519 (Version 1)
Quarter: 2016Q4

REPORT INFORMATION
  Report Type: Spontaneous
  Country: FR (occurrence: FR)
  Receive Date: 20161227
  Receipt Date: 20161227
  Transmission Date: 20170207
  Serious: Yes (Death, Hospitalization)
  Sender: FDA-Public Use
  Company Number: FR-PFIZER INC-2016597426

PATIENT
  Age: 82 Year
  Sex: Female

DRUGS (9)
  1. SYMBICORT [Suspect]
     Active Substance: BUDESONIDE\FORMOTEROL FUMARATE DIHYDRATE
     Dosage: UNK
  2. CORDARONE [Concomitant]
     Active Substance: AMIODARONE HYDROCHLORIDE
     Dosage: UNK
  3. MODOPAR [Concomitant]
     Active Substance: BENSERAZIDE HYDROCHLORIDE\LEVODOPA
     Dosage: UNK
  4. IMETH [Suspect]
     Active Substance: METHOTREXATE SODIUM
     Indication: RHEUMATOID ARTHRITIS
     Dosage: 10 MG, WEEKLY
     Route: 048
     Dates: end: 20161114
  5. DUPHALAC [Concomitant]
     Active Substance: LACTULOSE
     Dosage: UNK
  6. LASILIX [Suspect]
     Active Substance: FUROSEMIDE
     Indication: HYPERTENSION
     Dosage: 40 MG, 1X/DAY
     Route: 048
     Dates: end: 20161114
  7. ATROVENT [Concomitant]
     Active Substance: IPRATROPIUM BROMIDE
     Dosage: UNK
  8. PAROXETINE. [Suspect]
     Active Substance: PAROXETINE
     Indication: DEPRESSION
     Dosage: 20 MG, 1X/DAY
     Route: 048
     Dates: end: 20161116
  9. SEEBRI BREEZHALER [Concomitant]
     Active Substance: GLYCOPYRROLATE
     Dosage: UNK

REACTIONS (10)
  - Respiratory failure [Fatal]
  - Oxygen saturation decreased [Unknown]
  - Fall [Unknown]
  - White blood cell count decreased [Unknown]
  - General physical health deterioration [Unknown]
  - Infection [Fatal]
  - Lung disorder [Unknown]
  - Bone marrow failure [Fatal]
  - Platelet count decreased [Unknown]
  - Head injury [Unknown]

NARRATIVE: CASE EVENT DATE: 201610
